FAERS Safety Report 4729029-0 (Version None)
Quarter: 2005Q3

REPORT INFORMATION
  Report Type: 
  Country: None (occurrence: None)
  Receive Date: 20050729
  Receipt Date: 20050131
  Transmission Date: 20060218
  Serious: No
  Sender: FDA-Public Use
  Company Number: US-GLAXOSMITHKLINE-A0543088A

PATIENT
  Sex: Female

DRUGS (5)
  1. IMITREX [Suspect]
     Indication: MIGRAINE
     Dosage: 100MG AS REQUIRED
     Route: 048
     Dates: start: 20000201
  2. FOSAMAX [Concomitant]
     Dosage: 70MG WEEKLY
     Route: 048
  3. IBUPROFEN [Concomitant]
     Dosage: 600MG AS REQUIRED
     Route: 048
  4. ALLEGRA [Concomitant]
     Dosage: 180MG PER DAY
     Route: 048
  5. PROTONIX [Concomitant]
     Dosage: 40MG PER DAY
     Route: 048

REACTIONS (1)
  - STOMACH DISCOMFORT [None]
